FAERS Safety Report 4440290-2 (Version None)
Quarter: 2004Q3

REPORT INFORMATION
  Report Type: 
  Country: None (occurrence: None)
  Receive Date: 20040903
  Receipt Date: 20040709
  Transmission Date: 20050211
  Serious: Yes (Hospitalization)
  Sender: FDA-Public Use
  Company Number: PHNU2004DE02434

PATIENT
  Sex: Male
  Weight: 85 kg

DRUGS (1)
  1. SANDIMMUNE [Suspect]
     Indication: DERMATITIS ATOPIC
     Dosage: 350 ML DAILY
     Route: 042

REACTIONS (3)
  - BACK PAIN [None]
  - BURNING SENSATION [None]
  - PAIN IN EXTREMITY [None]
